FAERS Safety Report 11326140 (Version 3)
Quarter: 2015Q4

REPORT INFORMATION
  Report Type: Spontaneous
  Country: US (occurrence: US)
  Receive Date: 20150731
  Receipt Date: 20151006
  Transmission Date: 20160304
  Serious: Yes (Hospitalization)
  Sender: FDA-Public Use
  Company Number: US-BEH-2015052608

PATIENT
  Age: 77 Year
  Sex: Female
  Weight: 78 kg

DRUGS (20)
  1. BUDESONIDE 0.5 MG/2ML [Concomitant]
  2. LEVOTHYROXINE SODIUM 75 MCG [Concomitant]
  3. ACETAMINOPHEN. [Concomitant]
     Active Substance: ACETAMINOPHEN
  4. PREDNISONE 20 MG [Concomitant]
     Active Substance: PREDNISONE
  5. AMLODIPINE BESYLATE 5 MG [Concomitant]
  6. LORATADINE 10 MG [Concomitant]
  7. ALBUTEROL SULFATE. [Concomitant]
     Active Substance: ALBUTEROL SULFATE
  8. ASPIRIN 81 MG [Concomitant]
     Active Substance: ASPIRIN
  9. METOPROLOL TARTRATE 100 MG [Concomitant]
     Active Substance: METOPROLOL TARTRATE
  10. EPIPEN AUTOINJECTOR [Concomitant]
     Indication: ANAPHYLACTIC REACTION
  11. FLUTICASONE PROPIONATE. [Concomitant]
     Active Substance: FLUTICASONE PROPIONATE
  12. MUCUS ER 600 MG [Concomitant]
  13. VENTOLIN HFA 90 MCG [Concomitant]
  14. IPRATROPIUM BROMIDE. [Concomitant]
     Active Substance: IPRATROPIUM BROMIDE
  15. SINGULAIR [Concomitant]
     Active Substance: MONTELUKAST SODIUM
  16. DICYCLOMINE HCL 10 MG [Concomitant]
  17. LIDOCAINE 4% [Concomitant]
     Indication: PREMEDICATION
  18. HIZENTRA [Suspect]
     Active Substance: HUMAN IMMUNOGLOBULIN G
     Indication: IMMUNODEFICIENCY COMMON VARIABLE
     Route: 058
  19. LORAZEPAM. [Concomitant]
     Active Substance: LORAZEPAM
  20. DIPHENHYDRAMINE 25 MG [Concomitant]

REACTIONS (4)
  - Bronchitis chronic [Unknown]
  - Abdominal pain upper [Unknown]
  - Urinary tract infection [Unknown]
  - Pain [Unknown]

NARRATIVE: CASE EVENT DATE: 20150629
